FAERS Safety Report 8543103-2 (Version None)
Quarter: 2012Q3

REPORT INFORMATION
  Report Type: 
  Country: None (occurrence: None)
  Receive Date: 20120727
  Receipt Date: 20111005
  Transmission Date: 20120928
  Serious: No
  Sender: FDA-Public Use
  Company Number: US-MYLANLABS-2011S1020826

PATIENT
  Age: 75 Year
  Sex: Female
  Weight: 68.04 kg

DRUGS (5)
  1. CRESTOR [Concomitant]
     Indication: BLOOD CHOLESTEROL INCREASED
  2. LEVOTHYROXINE SODIUM [Suspect]
     Indication: HYPOTHYROIDISM
     Route: 048
     Dates: end: 20110601
  3. ESTRADIOL [Concomitant]
     Indication: HORMONE REPLACEMENT THERAPY
  4. LISINOPRIL AND HYDROCHLOROTHIAZIDE [Concomitant]
     Indication: BLOOD PRESSURE INCREASED
     Dosage: 10MG/12.5MG STRENGTH
     Dates: start: 20090101
  5. LEVOTHYROXINE SODIUM [Suspect]
     Route: 048
     Dates: start: 20110801

REACTIONS (6)
  - DRY SKIN [None]
  - DRUG EFFECT DECREASED [None]
  - FATIGUE [None]
  - SOMNOLENCE [None]
  - DYSPEPSIA [None]
  - BLOOD THYROID STIMULATING HORMONE DECREASED [None]
